FAERS Safety Report 25368065 (Version 1)
Quarter: 2025Q2

REPORT INFORMATION
  Report Type: Spontaneous
  Country: US (occurrence: None)
  Receive Date: 20250527
  Receipt Date: 20250527
  Transmission Date: 20250716
  Serious: Yes (Hospitalization)
  Sender: FDA-CTU
  Company Number: None

PATIENT
  Age: 68 Year
  Sex: Female

DRUGS (11)
  1. TACROLIMUS [Suspect]
     Active Substance: TACROLIMUS
     Indication: Heart transplant
     Dosage: FREQUENCY : TWICE A DAY;?
     Route: 048
     Dates: start: 20250503
  2. ELIQUIS [Concomitant]
     Active Substance: APIXABAN
  3. METOPROLOL [Concomitant]
     Active Substance: METOPROLOL
  4. LOSARTAN [Concomitant]
     Active Substance: LOSARTAN
  5. GABAPENTIN [Concomitant]
     Active Substance: GABAPENTIN
  6. AZATHIOPRINE [Concomitant]
     Active Substance: AZATHIOPRINE
  7. VALGANCICLOVIR [Concomitant]
     Active Substance: VALGANCICLOVIR
  8. BACTRIM [Concomitant]
     Active Substance: SULFAMETHOXAZOLE\TRIMETHOPRIM
  9. PREDNISONE [Concomitant]
     Active Substance: PREDNISONE
  10. PRAMIPEXOLE [Concomitant]
     Active Substance: PRAMIPEXOLE
  11. PRAVASTATIN [Concomitant]
     Active Substance: PRAVASTATIN

REACTIONS (2)
  - Arrhythmia [None]
  - Heart rate increased [None]

NARRATIVE: CASE EVENT DATE: 20250526
